FAERS Safety Report 6564510-3 (Version None)
Quarter: 2010Q1

REPORT INFORMATION
  Report Type: 
  Country: None (occurrence: None)
  Receive Date: 20100201
  Receipt Date: 20100119
  Transmission Date: 20100710
  Serious: Yes (Hospitalization)
  Sender: FDA-Public Use
  Company Number: US-ELI_LILLY_AND_COMPANY-US200912001538

PATIENT
  Age: 37 Year
  Sex: Female
  Weight: 53.515 kg

DRUGS (8)
  1. FORTEO [Suspect]
     Indication: OSTEOPOROSIS
     Dosage: 20 UG, DAILY (1/D)
     Dates: start: 20090501, end: 20091203
  2. PEGASYS [Concomitant]
     Indication: HEPATITIS C
     Dates: end: 20091203
  3. SOMA [Concomitant]
  4. RIBAVIRIN [Concomitant]
  5. OXYCODONE [Concomitant]
  6. ADVAIR DISKUS 100/50 [Concomitant]
  7. PROAIR HFA [Concomitant]
  8. VALIUM [Concomitant]

REACTIONS (2)
  - ANAEMIA [None]
  - NEUTROPENIA [None]
